FAERS Safety Report 6595712-8 (Version None)
Quarter: 2010Q1

REPORT INFORMATION
  Report Type: 
  Country: None (occurrence: None)
  Receive Date: 20100219
  Receipt Date: 20100219
  Transmission Date: 20100710
  Serious: No
  Sender: FDA-Public Use
  Company Number: None

PATIENT
  Age: 77 Year
  Sex: Female
  Weight: 55.3388 kg

DRUGS (1)
  1. LYRICA [Suspect]
     Dosage: 1 2 LATE JAN. TRIED AGAIN FEB

REACTIONS (2)
  - SKIN DISCOLOURATION [None]
  - VISION BLURRED [None]
